FAERS Safety Report 9222855 (Version 1)
Quarter: 2013Q2

REPORT INFORMATION
  Report Type: Spontaneous
  Country: US (occurrence: US)
  Receive Date: 20130410
  Receipt Date: 20130410
  Transmission Date: 20140414
  Serious: Yes (Other)
  Sender: FDA-Public Use
  Company Number: US-PFIZER INC-2013106962

PATIENT
  Age: 66 Year
  Sex: Female
  Weight: 49.89 kg

DRUGS (5)
  1. ADVIL [Suspect]
     Dosage: 1 DF, 1X/DAY
     Route: 048
     Dates: start: 201301, end: 201301
  2. CENTRUM WOMEN UNDER 50 [Suspect]
     Dosage: UNK
  3. TYLENOL [Concomitant]
     Indication: ARTHRALGIA
     Dosage: UNK, AS NEEDED
  4. ASPIRIN [Concomitant]
     Indication: ARTHRALGIA
     Dosage: UNK, AS NEEDED
  5. SYNTHROID [Concomitant]
     Indication: THYROID DISORDER
     Dosage: 0.88 MG, 1X/DAY

REACTIONS (7)
  - Convulsion [Recovered/Resolved]
  - Multiple sclerosis [Recovered/Resolved]
  - Syncope [Recovered/Resolved]
  - Nervous system disorder [Recovered/Resolved]
  - Feeling abnormal [Recovered/Resolved]
  - Dizziness [Recovered/Resolved]
  - Drug administered to patient of inappropriate age [None]
